FAERS Safety Report 5205771-2 (Version None)
Quarter: 2007Q1

REPORT INFORMATION
  Report Type: 
  Country: None (occurrence: None)
  Receive Date: 20070108
  Receipt Date: 20070108
  Transmission Date: 20070707
  Serious: Yes (Hospitalization)
  Sender: FDA-Public Use
  Company Number: None

PATIENT
  Age: 87 Year
  Sex: Male
  Weight: 91.6 kg

DRUGS (1)
  1. LEVAQUIN [Suspect]
     Indication: UROSEPSIS
     Dosage: 500MG DAILY PO
     Route: 048
     Dates: start: 20070103, end: 20070104

REACTIONS (1)
  - HYPOGLYCAEMIA [None]
